FAERS Safety Report 8976470 (Version 1)
Quarter: 2012Q4

REPORT INFORMATION
  Report Type: Report from Study
  Country: DK (occurrence: DK)
  Receive Date: 20121219
  Receipt Date: 20121219
  Transmission Date: 20130627
  Serious: Yes (Death, Hospitalization)
  Sender: FDA-Public Use
  Company Number: DK-BAXTER-2012BAX027568

PATIENT
  Age: 77 Year
  Sex: Female
  Weight: 67 kg

DRUGS (7)
  1. SENDOXAN [Suspect]
     Indication: B-CELL LYMPHOMA
     Route: 042
     Dates: start: 20090626, end: 20090626
  2. RITUXIMAB [Suspect]
     Indication: B-CELL LYMPHOMA
     Route: 042
     Dates: start: 20090626, end: 20090626
  3. PREDNISONE [Suspect]
     Indication: B-CELL LYMPHOMA
     Route: 048
     Dates: start: 20090619, end: 20090630
  4. PREDNISONE [Suspect]
     Route: 048
     Dates: start: 20090630
  5. DOXORUBICIN [Suspect]
     Indication: B-CELL LYMPHOMA
     Route: 042
     Dates: start: 20090626, end: 20090626
  6. VINCRISTINE [Suspect]
     Indication: B-CELL LYMPHOMA
     Route: 042
     Dates: start: 20090626, end: 20090626
  7. G-CSF [Suspect]
     Indication: B-CELL LYMPHOMA
     Route: 058
     Dates: start: 20090701

REACTIONS (4)
  - Organ failure [Fatal]
  - Respiratory failure [Fatal]
  - Cardiovascular disorder [Fatal]
  - Pneumonia [Fatal]
